APPROVED DRUG PRODUCT: HYDROCODONE BITARTRATE AND ACETAMINOPHEN
Active Ingredient: ACETAMINOPHEN; HYDROCODONE BITARTRATE
Strength: 325MG;10MG
Dosage Form/Route: TABLET;ORAL
Application: A203863 | Product #003 | TE Code: AA
Applicant: EPIC PHARMA LLC
Approved: Mar 30, 2018 | RLD: No | RS: No | Type: RX